FAERS Safety Report 18540562 (Version 1)
Quarter: 2020Q4

REPORT INFORMATION
  Report Type: Spontaneous
  Country: US (occurrence: US)
  Receive Date: 20201124
  Receipt Date: 20201124
  Transmission Date: 20210114
  Serious: Yes (Other)
  Sender: FDA-Public Use
  Company Number: None

PATIENT
  Age: 46 Year
  Sex: Male
  Weight: 128.4 kg

DRUGS (1)
  1. BAMLANIVIMAB. [Suspect]
     Active Substance: BAMLANIVIMAB
     Indication: COVID-19 TREATMENT
     Dosage: ?          OTHER FREQUENCY:ONCE;?
     Route: 042

REACTIONS (7)
  - Flushing [None]
  - Erythema [None]
  - Mouth swelling [None]
  - Infusion related reaction [None]
  - Dizziness [None]
  - Abdominal pain upper [None]
  - Dyspnoea [None]

NARRATIVE: CASE EVENT DATE: 20201120
